FAERS Safety Report 21515835 (Version 1)
Quarter: 2022Q4

REPORT INFORMATION
  Report Type: 
  Country: None (occurrence: None)
  Receive Date: 20221027
  Receipt Date: 20221027
  Transmission Date: 20230113
  Serious: Yes (Hospitalization, Other)
  Sender: FDA-Public Use
  Company Number: None

PATIENT
  Age: 13 Year
  Sex: Female

DRUGS (1)
  1. LEVETIRACETAM [Suspect]
     Active Substance: LEVETIRACETAM

REACTIONS (9)
  - Headache [Recovered/Resolved]
  - Vomiting [Recovered/Resolved]
  - Photophobia [Recovered/Resolved]
  - Confusional state [Recovered/Resolved]
  - CSF protein increased [Recovered/Resolved]
  - Pleocytosis [Recovered/Resolved]
  - CSF glucose increased [Recovered/Resolved]
  - Meningitis aseptic [Recovered/Resolved]
  - CSF glucose decreased [Recovered/Resolved]
